FAERS Safety Report 7941371-9 (Version None)
Quarter: 2011Q4

REPORT INFORMATION
  Report Type: 
  Country: None (occurrence: None)
  Receive Date: 20111122
  Receipt Date: 20111122
  Transmission Date: 20120403
  Serious: Yes (Other)
  Sender: FDA-Public Use
  Company Number: None

PATIENT
  Age: 40 Year
  Sex: Female
  Weight: 71.6683 kg

DRUGS (4)
  1. FLUCONAZOLE [Suspect]
     Indication: CANDIDIASIS
     Dosage: 100 MG TABLET ONCE BY MOUTH MULTIPLE TIMES SINCE
     Route: 048
     Dates: start: 20110401
  2. FLUCONAZOLE [Suspect]
     Indication: CANDIDIASIS
     Dosage: 100 MG TABLET ONCE BY MOUTH MULTIPLE TIMES SINCE
     Route: 048
     Dates: start: 20110501
  3. FLUCONAZOLE [Suspect]
     Indication: CANDIDIASIS
     Dosage: 100 MG TABLET ONCE BY MOUTH MULTIPLE TIMES SINCE
     Route: 048
     Dates: start: 20110601
  4. FLUCONAZOLE [Suspect]
     Indication: CANDIDIASIS
     Dosage: 100 MG TABLET ONCE BY MOUTH MULTIPLE TIMES SINCE
     Route: 048
     Dates: start: 20110918

REACTIONS (2)
  - URTICARIA [None]
  - BLISTER [None]
